FAERS Safety Report 5811533-5 (Version None)
Quarter: 2008Q3

REPORT INFORMATION
  Report Type: 
  Country: None (occurrence: None)
  Receive Date: 20080716
  Receipt Date: 20080707
  Transmission Date: 20090109
  Serious: Yes (Other)
  Sender: FDA-Public Use
  Company Number: GB-MERCK-0807GBR00041

PATIENT
  Age: 63 Year
  Sex: Female

DRUGS (8)
  1. ZETIA [Suspect]
     Indication: HYPERLIPIDAEMIA
     Route: 048
     Dates: start: 20071207, end: 20080528
  2. AMITRIPTYLINE HYDROCHLORIDE [Concomitant]
     Indication: MIGRAINE
     Route: 048
     Dates: start: 19981120
  3. DICLOFENAC SODIUM AND MISOPROSTOL [Concomitant]
     Indication: OSTEOARTHRITIS
     Route: 048
     Dates: start: 20021001
  4. ASPIRIN [Concomitant]
     Indication: TRANSIENT ISCHAEMIC ATTACK
     Route: 048
     Dates: start: 20001030
  5. ATORVASTATIN [Concomitant]
     Indication: HYPERLIPIDAEMIA
     Route: 048
     Dates: start: 20060816
  6. METOCLOPRAMIDE [Concomitant]
     Indication: HIATUS HERNIA
     Route: 048
     Dates: start: 20040319
  7. OMEPRAZOLE [Concomitant]
     Indication: HIATUS HERNIA
     Route: 048
     Dates: start: 20040329
  8. PROPRANOLOL HYDROCHLORIDE [Concomitant]
     Indication: MIGRAINE
     Route: 048
     Dates: start: 19971003

REACTIONS (1)
  - BLOOD CHOLESTEROL INCREASED [None]
